FAERS Safety Report 8885933 (Version 3)
Quarter: 2014Q2

REPORT INFORMATION
  Report Type: Spontaneous
  Country: US (occurrence: US)
  Receive Date: 20121102
  Receipt Date: 20140429
  Transmission Date: 20141212
  Serious: Yes (Hospitalization)
  Sender: FDA-Public Use
  Company Number: US-BAYER-2012-114483

PATIENT
  Age: 15 Year
  Sex: Female
  Weight: 95.24 kg

DRUGS (6)
  1. YAZ [Suspect]
     Dosage: UNK
     Dates: start: 20070827, end: 200802
  2. YAZ [Suspect]
     Dosage: UNK
     Dates: start: 200708, end: 200912
  3. OCELLA [Suspect]
     Dosage: UNK
     Dates: start: 200902, end: 200904
  4. MIRALAX [Concomitant]
  5. PROVERA [Concomitant]
  6. LOESTRIN [Concomitant]

REACTIONS (9)
  - Cholecystectomy [None]
  - Cholelithiasis [None]
  - Pain [None]
  - Injury [None]
  - General physical health deterioration [None]
  - Emotional distress [None]
  - Anxiety [None]
  - Anhedonia [None]
  - Pain [None]
